FAERS Safety Report 4612044-5 (Version None)
Quarter: 2005Q2

REPORT INFORMATION
  Report Type: 
  Country: None (occurrence: None)
  Receive Date: 20050308
  Receipt Date: 20041130
  Transmission Date: 20051028
  Serious: Yes (Other)
  Sender: FDA-Public Use
  Company Number: 2004UW24472

PATIENT
  Age: 85 Year
  Sex: Female

DRUGS (10)
  1. CRESTOR [Suspect]
     Indication: BLOOD CHOLESTEROL INCREASED
     Dates: start: 20041120
  2. TIAZAC [Concomitant]
  3. SYNTHROID [Concomitant]
  4. DIGITEK [Concomitant]
  5. COMBIVENT [Concomitant]
  6. DIAZIDE [Concomitant]
  7. IPRATROPIUM BROMIDE [Concomitant]
  8. NO MATCH [Concomitant]
  9. XOPENEX [Concomitant]
  10. PULMICORT RESPULES [Concomitant]

REACTIONS (1)
  - RESTLESS LEGS SYNDROME [None]
